FAERS Safety Report 24414912 (Version 1)
Quarter: 2024Q4

REPORT INFORMATION
  Report Type: Spontaneous
  Country: DE (occurrence: DE)
  Receive Date: 20241009
  Receipt Date: 20241009
  Transmission Date: 20250115
  Serious: Yes (Hospitalization)
  Sender: SANDOZ
  Company Number: DE-009507513-2410DEU000522

PATIENT
  Sex: Male
  Weight: 112 kg

DRUGS (3)
  1. CISPLATIN [Suspect]
     Active Substance: CISPLATIN
     Indication: Non-small cell lung cancer
     Dosage: 150 MG, UNK
     Route: 065
     Dates: start: 20240808, end: 20240913
  2. PEMETREXED [Suspect]
     Active Substance: PEMETREXED
     Indication: Non-small cell lung cancer
     Dosage: 100 MILLIGRAM, UNK, 1ST LINE
     Route: 065
     Dates: start: 20240808, end: 20240913
  3. PEMBROLIZUMAB [Suspect]
     Active Substance: PEMBROLIZUMAB
     Indication: Non-small cell lung cancer
     Dosage: 200 MG, UNK, 1ST LINE||
     Route: 065
     Dates: start: 20240808, end: 20240913

REACTIONS (1)
  - Ileus [Not Recovered/Not Resolved]

NARRATIVE: CASE EVENT DATE: 20240925
